FAERS Safety Report 18157513 (Version 1)
Quarter: 2020Q3

REPORT INFORMATION
  Report Type: Spontaneous
  Country: DE (occurrence: DE)
  Receive Date: 20200817
  Receipt Date: 20200817
  Transmission Date: 20201103
  Serious: Yes (Hospitalization)
  Sender: FDA-Public Use
  Company Number: DE-TEVA-2020-DE-1814034

PATIENT
  Age: 59 Year
  Sex: Female

DRUGS (5)
  1. CITALOPRAM [Suspect]
     Active Substance: CITALOPRAM HYDROBROMIDE
     Route: 065
  2. CIATYL?Z DEPOT [Suspect]
     Active Substance: ZUCLOPENTHIXOL DECANOATE
     Dosage: 3 ML, EVERY 14 DAYS, PRE?FILLED SYRINGES
  3. PREGABALIN. [Suspect]
     Active Substance: PREGABALIN
     Dosage: 300 MILLIGRAM DAILY; 150 MG, 1?0?0?1
  4. LEVOTHYROXIN?NATRIUM [Concomitant]
     Active Substance: LEVOTHYROXINE SODIUM
     Dosage: 75 MICROGRAM DAILY; 1?0?0?0
  5. FUROSEMID [Concomitant]
     Active Substance: FUROSEMIDE
     Dosage: 20 MG

REACTIONS (2)
  - Fall [Unknown]
  - Dizziness [Unknown]
